FAERS Safety Report 7675013-7 (Version None)
Quarter: 2011Q3

REPORT INFORMATION
  Report Type: 
  Country: None (occurrence: None)
  Receive Date: 20110810
  Receipt Date: 20110802
  Transmission Date: 20111222
  Serious: Yes (Other)
  Sender: FDA-Public Use
  Company Number: US-BAYER-200934367NA

PATIENT
  Age: 74 Year
  Sex: Female
  Weight: 92.7 kg

DRUGS (12)
  1. HEPARIN [Concomitant]
     Indication: PRODUCT USED FOR UNKNOWN INDICATION
     Dosage: 10,000IU + 10,000IU + 500U
     Dates: start: 20050531
  2. LIDOCAINE [Concomitant]
     Indication: PRODUCT USED FOR UNKNOWN INDICATION
     Dosage: 100MG + 100MG
     Dates: start: 20050531
  3. MAGNESIUM SULFATE [Concomitant]
     Indication: PRODUCT USED FOR UNKNOWN INDICATION
     Dosage: 2.5 G, UNK
  4. PROTAMINE [Concomitant]
     Dosage: UNK
     Dates: start: 20050531
  5. INSULIN [INSULIN HUMAN] [Concomitant]
     Indication: PRODUCT USED FOR UNKNOWN INDICATION
     Dosage: 20 U, UNK
     Dates: start: 20050531
  6. ZINACEF [Concomitant]
     Dosage: UNK
     Dates: start: 20050531
  7. LASIX [Concomitant]
     Indication: PRODUCT USED FOR UNKNOWN INDICATION
     Dosage: 20 MG, UNK
  8. TRASYLOL [Suspect]
     Indication: PRODUCT USED FOR UNKNOWN INDICATION
  9. LASIX [Concomitant]
     Dosage: UNK
     Dates: start: 20050531
  10. PAVULON [Concomitant]
     Indication: PRODUCT USED FOR UNKNOWN INDICATION
     Dosage: 10 MG, UNK
     Dates: start: 20050531
  11. SODIUM BICARBONATE [Concomitant]
     Indication: PRODUCT USED FOR UNKNOWN INDICATION
     Dosage: 50 MEQ, UNK
  12. CALCIUM CHLORIDE [Concomitant]
     Indication: PRODUCT USED FOR UNKNOWN INDICATION
     Dosage: 500 MG, UNK

REACTIONS (12)
  - DEPRESSION [None]
  - NERVOUSNESS [None]
  - FEAR [None]
  - INJURY [None]
  - ANXIETY [None]
  - PAIN [None]
  - UNEVALUABLE EVENT [None]
  - ANHEDONIA [None]
  - MULTI-ORGAN FAILURE [None]
  - RENAL INJURY [None]
  - RENAL FAILURE [None]
  - EMOTIONAL DISTRESS [None]
